FAERS Safety Report 21383757 (Version 1)
Quarter: 2022Q3

REPORT INFORMATION
  Report Type: Spontaneous
  Country: US (occurrence: US)
  Receive Date: 20220928
  Receipt Date: 20220928
  Transmission Date: 20221027
  Serious: No
  Sender: FDA-Public Use
  Company Number: US-ELI_LILLY_AND_COMPANY-US202209012155

PATIENT
  Age: 38 Year
  Sex: Female

DRUGS (4)
  1. EMGALITY [Suspect]
     Active Substance: GALCANEZUMAB-GNLM
     Indication: Product used for unknown indication
     Dosage: 120 MG, UNKNOWN
     Route: 065
     Dates: start: 202203
  2. EMGALITY [Suspect]
     Active Substance: GALCANEZUMAB-GNLM
     Dosage: 120 MG, UNKNOWN
     Route: 065
     Dates: start: 202203
  3. TRAMADOL [Concomitant]
     Active Substance: TRAMADOL
     Indication: Muscle strain
     Dosage: 1 DOSAGE FORM, PRN
  4. TRAMADOL [Concomitant]
     Active Substance: TRAMADOL
     Indication: Migraine

REACTIONS (1)
  - Ophthalmic migraine [Unknown]

NARRATIVE: CASE EVENT DATE: 20220924
